FAERS Safety Report 10970793 (Version 2)
Quarter: 2015Q3

REPORT INFORMATION
  Report Type: Spontaneous
  Country: US (occurrence: US)
  Receive Date: 20150331
  Receipt Date: 20150929
  Transmission Date: 20151125
  Serious: Yes (Disabling)
  Sender: FDA-Public Use
  Company Number: US-009507513-1503USA013716

PATIENT
  Sex: Male

DRUGS (1)
  1. PROPECIA [Suspect]
     Active Substance: FINASTERIDE
     Indication: ALOPECIA
     Dosage: 1 MG, UNK
     Route: 048
     Dates: start: 20030530, end: 20100728

REACTIONS (6)
  - Penis disorder [Unknown]
  - Loss of libido [Not Recovered/Not Resolved]
  - Disturbance in sexual arousal [Unknown]
  - Anxiety [Not Recovered/Not Resolved]
  - Circadian rhythm sleep disorder [Unknown]
  - Panic attack [Unknown]

NARRATIVE: CASE EVENT DATE: 2004
